FAERS Safety Report 7897559-9 (Version None)
Quarter: 2011Q4

REPORT INFORMATION
  Report Type: 
  Country: None (occurrence: None)
  Receive Date: 20111107
  Receipt Date: 20111031
  Transmission Date: 20120403
  Serious: Yes (Other)
  Sender: FDA-Public Use
  Company Number: US-ELI_LILLY_AND_COMPANY-US201108007605

PATIENT
  Sex: Male

DRUGS (2)
  1. TOPROL-XL [Concomitant]
     Dosage: UNK, UNKNOWN
     Route: 065
  2. EFFIENT [Suspect]
     Indication: STENT PLACEMENT
     Dosage: 10 MG, QD
     Dates: start: 20110411

REACTIONS (9)
  - RECTAL HAEMORRHAGE [None]
  - DIARRHOEA [None]
  - WEIGHT DECREASED [None]
  - ANXIETY [None]
  - INCORRECT STORAGE OF DRUG [None]
  - COLITIS [None]
  - DECREASED APPETITE [None]
  - ABDOMINAL PAIN UPPER [None]
  - APHAGIA [None]
